FAERS Safety Report 20151242 (Version 1)
Quarter: 2021Q4

REPORT INFORMATION
  Report Type: Spontaneous
  Country: US (occurrence: US)
  Receive Date: 20211206
  Receipt Date: 20211206
  Transmission Date: 20220303
  Serious: Yes (Other)
  Sender: FDA-Public Use
  Company Number: US-SANOFI-00878393

PATIENT
  Age: 52 Year
  Sex: Male

DRUGS (1)
  1. LANTUS SOLOSTAR [Suspect]
     Active Substance: INSULIN GLARGINE
     Indication: Type 2 diabetes mellitus
     Dosage: 25 IU, QD (NIGHTLY)
     Route: 065
     Dates: start: 2020

REACTIONS (3)
  - Pancreatitis [Unknown]
  - Diabetic neuropathy [Unknown]
  - Nerve injury [Unknown]

NARRATIVE: CASE EVENT DATE: 20200101
